FAERS Safety Report 20094011 (Version 1)
Quarter: 2021Q4

REPORT INFORMATION
  Report Type: Spontaneous
  Country: DE (occurrence: DE)
  Receive Date: 20211121
  Receipt Date: 20211121
  Transmission Date: 20220303
  Serious: Yes (Hospitalization, Other)
  Sender: FDA-Public Use
  Company Number: DE-MACLEODS PHARMA UK LTD-MAC2021033287

PATIENT

DRUGS (3)
  1. CLOPIDOGREL [Suspect]
     Active Substance: CLOPIDOGREL BISULFATE
     Indication: Arterial stent insertion
     Dosage: 75 MILLIGRAM, QD
     Route: 065
  2. CLOPIDOGREL [Suspect]
     Active Substance: CLOPIDOGREL BISULFATE
     Indication: Peripheral arterial occlusive disease
  3. ASPIRIN [Concomitant]
     Active Substance: ASPIRIN
     Indication: Peripheral arterial occlusive disease
     Dosage: 100 MILLIGRAM, QD
     Route: 065

REACTIONS (3)
  - Seizure [Recovered/Resolved]
  - Insulin autoimmune syndrome [Recovered/Resolved]
  - Hypoglycaemia [Recovered/Resolved]
